FAERS Safety Report 9473552 (Version 1)
Quarter: 2013Q3

REPORT INFORMATION
  Report Type: Spontaneous
  Country: US (occurrence: US)
  Receive Date: 20130823
  Receipt Date: 20130823
  Transmission Date: 20140515
  Serious: No
  Sender: FDA-Public Use
  Company Number: US-GALDERMA-US13001830

PATIENT
  Age: 26 Year
  Sex: Female
  Weight: 109 kg

DRUGS (4)
  1. METROGEL (METRONIDAZOLE) GEL, 1% [Suspect]
     Indication: ROSACEA
     Dosage: 1%
     Route: 061
     Dates: start: 201104, end: 2012
  2. GOATS MILK SOAP [Concomitant]
     Indication: THERAPEUTIC SKIN CARE TOPICAL
     Route: 061
     Dates: start: 2011
  3. CETAPHIL DAILY FACIAL MOISTURIZER SPF15 [Concomitant]
     Indication: DRY SKIN PROPHYLAXIS
     Route: 061
     Dates: start: 2011
  4. TETRACYCLINE [Concomitant]
     Indication: ROSACEA
     Route: 048
     Dates: start: 201104, end: 201107

REACTIONS (1)
  - Drug ineffective [Not Recovered/Not Resolved]
